FAERS Safety Report 9225289 (Version 1)
Quarter: 2013Q2

REPORT INFORMATION
  Report Type: Spontaneous
  Country: DE (occurrence: DE)
  Receive Date: 20130411
  Receipt Date: 20130411
  Transmission Date: 20140414
  Serious: Yes (Hospitalization)
  Sender: FDA-Public Use
  Company Number: DE-ROCHE-1206814

PATIENT
  Age: 72 Year
  Sex: Male
  Weight: 79 kg

DRUGS (5)
  1. ACTILYSE [Suspect]
     Indication: ACUTE MYOCARDIAL INFARCTION
     Dosage: DOSE: 8000 U
     Route: 042
     Dates: start: 20070728
  2. ASPIRIN [Suspect]
     Indication: ACUTE MYOCARDIAL INFARCTION
     Route: 042
     Dates: start: 20070728
  3. HEPARIN [Suspect]
     Indication: ACUTE MYOCARDIAL INFARCTION
     Dosage: DOSE: 5000 U
     Route: 042
     Dates: start: 20070728
  4. HEPARIN [Suspect]
     Dosage: DOSE: 8000 U
     Route: 042
     Dates: start: 20070729
  5. CLOPIDOGREL [Suspect]
     Indication: ACUTE MYOCARDIAL INFARCTION
     Route: 048
     Dates: start: 20070728

REACTIONS (1)
  - Vascular pseudoaneurysm [Recovered/Resolved]
